FAERS Safety Report 19835486 (Version 1)
Quarter: 2021Q3

REPORT INFORMATION
  Report Type: Spontaneous
  Country: IT (occurrence: IT)
  Receive Date: 20210914
  Receipt Date: 20210914
  Transmission Date: 20211014
  Serious: Yes (Hospitalization)
  Sender: FDA-Public Use
  Company Number: IT-MYLANLABS-2021M1060999

PATIENT
  Age: 20 Year
  Sex: Female

DRUGS (8)
  1. ACETYLCYSTEINE. [Suspect]
     Active Substance: ACETYLCYSTEINE
     Indication: TOXICITY TO VARIOUS AGENTS
     Dosage: UNK
     Route: 065
     Dates: start: 2019
  2. GLUTATHIONE [Suspect]
     Active Substance: GLUTATHIONE
     Indication: ANTIOXIDANT THERAPY
     Dosage: UNK
     Route: 065
     Dates: start: 2019
  3. URSODEOXYCHOLIC ACID [Suspect]
     Active Substance: URSODIOL
     Indication: DRUG-INDUCED LIVER INJURY
     Dosage: UNK
     Route: 065
     Dates: start: 2019
  4. CERTOLIZUMAB PEGOL [Suspect]
     Active Substance: CERTOLIZUMAB PEGOL
     Indication: STILL^S DISEASE
     Dosage: UNK, BIMONTHLY
     Route: 058
     Dates: start: 2019
  5. PREDNISONE. [Suspect]
     Active Substance: PREDNISONE
     Indication: ARTHRALGIA
     Dosage: 15 MILLIGRAM, QD
     Route: 065
     Dates: start: 2019
  6. ACETAMINOPHEN. [Suspect]
     Active Substance: ACETAMINOPHEN
     Indication: ARTHRALGIA
     Dosage: UNK UNK, QD (5?6 G)
     Route: 065
     Dates: start: 2019
  7. ACETAMINOPHEN. [Suspect]
     Active Substance: ACETAMINOPHEN
     Dosage: UNK UNK, QD (1?2G)
     Route: 065
     Dates: start: 2019
  8. PREDNISONE. [Suspect]
     Active Substance: PREDNISONE
     Dosage: 7.5 MILLIGRAM, QD
     Route: 065
     Dates: start: 2019

REACTIONS (6)
  - Toxicity to various agents [Recovering/Resolving]
  - Hepatic encephalopathy [Recovering/Resolving]
  - Intentional overdose [Recovering/Resolving]
  - Acute hepatic failure [Recovering/Resolving]
  - Drug-induced liver injury [Recovering/Resolving]
  - Maternal exposure during pregnancy [Recovered/Resolved]

NARRATIVE: CASE EVENT DATE: 2019
